FAERS Safety Report 19463314 (Version 1)
Quarter: 2021Q2

REPORT INFORMATION
  Report Type: Spontaneous
  Country: US (occurrence: US)
  Receive Date: 20210625
  Receipt Date: 20210625
  Transmission Date: 20210717
  Serious: Yes (Hospitalization)
  Sender: FDA-Public Use
  Company Number: US-ASTRAZENECA-2021A541114

PATIENT
  Age: 833 Month
  Sex: Female
  Weight: 101.2 kg

DRUGS (1)
  1. PULMICORT FLEXHALER [Suspect]
     Active Substance: BUDESONIDE
     Indication: ASTHMA
     Dosage: 90 MCG 1 PUFF TWICE DAILY
     Route: 055
     Dates: start: 20190506

REACTIONS (3)
  - Body height decreased [Not Recovered/Not Resolved]
  - Device malfunction [Unknown]
  - Lung neoplasm malignant [Unknown]

NARRATIVE: CASE EVENT DATE: 201909
